FAERS Safety Report 10213472 (Version 3)
Quarter: 2014Q2

REPORT INFORMATION
  Report Type: Spontaneous
  Country: US (occurrence: None)
  Receive Date: 20140529
  Receipt Date: 20140613
  Transmission Date: 20141212
  Serious: Yes (Life-Threatening, Hospitalization, Other)
  Sender: FDA-Public Use
  Company Number: ADR-2014-00891

PATIENT
  Age: 63 Year
  Sex: Male

DRUGS (2)
  1. BACLOFEN INTRATHECAL [Suspect]
     Indication: MUSCLE SPASTICITY
     Dosage: INTRATHECAL.
  2. BUPIVACAINE [Suspect]

REACTIONS (10)
  - Mental status changes [None]
  - Somnolence [None]
  - Hypercapnia [None]
  - Respiratory failure [None]
  - Asthenia [None]
  - Confusional state [None]
  - Incorrect dose administered by device [None]
  - Overdose [None]
  - Pneumonia aspiration [None]
  - Intestinal perforation [None]
